FAERS Safety Report 5933111-X (Version None)
Quarter: 2008Q4

REPORT INFORMATION
  Report Type: 
  Country: None (occurrence: None)
  Receive Date: 20081028
  Receipt Date: 20081013
  Transmission Date: 20090506
  Serious: Yes (Other)
  Sender: FDA-Public Use
  Company Number: PHHY2008BR24922

PATIENT
  Sex: Male
  Weight: 68 kg

DRUGS (14)
  1. FORASEQ [Suspect]
     Indication: ASTHMA
     Dosage: 12/400 MCG, IN THE MORNING AND NIGHT
     Dates: start: 20060101
  2. TAMIRAM [Suspect]
     Indication: WHEEZING
     Dosage: UNK
     Dates: start: 20080712, end: 20080725
  3. PREDSIM [Suspect]
     Indication: WHEEZING
     Dosage: UNK
     Dates: start: 20080712, end: 20080716
  4. OLCADIL [Concomitant]
     Dosage: 1 TABLET/DAY
     Route: 048
  5. SPIRIVA [Concomitant]
     Indication: ASTHMA
     Dosage: UNK
     Dates: start: 20061201, end: 20080925
  6. SIMVASTATIN [Concomitant]
     Indication: BLOOD CHOLESTEROL
     Dosage: 1 TABLET/DAY
  7. VITAMIN B [Concomitant]
     Dosage: 1 TABLET EVERY SATURDAY
     Route: 048
  8. THIAMINE HCL [Concomitant]
     Dosage: 1 TABLET EVERY THURSDAY
     Route: 048
  9. PYROXIN [Concomitant]
     Dosage: 1 TABLET EVERY THURSDAY
     Route: 048
  10. CYANOCOBALAMIN [Concomitant]
     Dosage: 1 TABLET EVERY THURSDAY
     Route: 048
  11. STRESSTABS [Concomitant]
     Route: 048
  12. TEBONIN [Concomitant]
     Indication: LABYRINTHITIS
     Dosage: 2 TABLETS IN THE MORNING
  13. ALDACTONE [Suspect]
     Dosage: HALF TABLET/DAY
     Dates: start: 20080815
  14. LASIX [Suspect]
     Dosage: HALF TABLET/DAY
     Dates: start: 20080815

REACTIONS (9)
  - DRUG INEFFECTIVE [None]
  - FATIGUE [None]
  - MOBILITY DECREASED [None]
  - OEDEMA PERIPHERAL [None]
  - PHYSIOTHERAPY [None]
  - PRODUCTIVE COUGH [None]
  - TENDON RUPTURE [None]
  - WEIGHT DECREASED [None]
  - WHEEZING [None]
